FAERS Safety Report 7988380-1 (Version None)
Quarter: 2011Q4

REPORT INFORMATION
  Report Type: 
  Country: None (occurrence: None)
  Receive Date: 20111216
  Receipt Date: 20111207
  Transmission Date: 20120403
  Serious: Yes (Other)
  Sender: FDA-Public Use
  Company Number: US-CELGENEUS-163-21880-11121005

PATIENT
  Sex: Male

DRUGS (3)
  1. ACYCLOVIR [Concomitant]
     Route: 065
  2. REVLIMID [Suspect]
     Indication: MULTIPLE MYELOMA
     Dosage: 25 MILLIGRAM
     Route: 048
     Dates: start: 20110501
  3. BACTRIM [Concomitant]
     Route: 065

REACTIONS (1)
  - NEUTROPENIC COLITIS [None]
